FAERS Safety Report 5581928-6 (Version None)
Quarter: 2008Q1

REPORT INFORMATION
  Report Type: 
  Country: None (occurrence: None)
  Receive Date: 20080104
  Receipt Date: 20071228
  Transmission Date: 20080703
  Serious: Yes (Life-Threatening)
  Sender: FDA-Public Use
  Company Number: A0693973A

PATIENT
  Age: 50 Year

DRUGS (4)
  1. LAPATINIB [Suspect]
     Dosage: 1500MG PER DAY
     Route: 048
  2. CISPLATIN [Suspect]
     Dosage: 100MGM2 CYCLIC
     Route: 042
     Dates: start: 20071106
  3. RADIOTHERAPY [Suspect]
     Route: 061
  4. ATENOLOL [Concomitant]
     Indication: HYPERTENSION
     Dosage: 50MG PER DAY
     Route: 048

REACTIONS (3)
  - BLOOD CREATININE INCREASED [None]
  - BRADYCARDIA [None]
  - HYPERTENSION [None]
